FAERS Safety Report 8415161-7 (Version None)
Quarter: 2012Q2

REPORT INFORMATION
  Report Type: 
  Country: None (occurrence: None)
  Receive Date: 20120606
  Receipt Date: 20120531
  Transmission Date: 20120825
  Serious: Yes (Other)
  Sender: FDA-Public Use
  Company Number: US-PFIZER INC-2012131614

PATIENT
  Sex: Male

DRUGS (2)
  1. VIAGRA [Suspect]
  2. CIALIS [Suspect]

REACTIONS (3)
  - ERECTION INCREASED [None]
  - DRUG INEFFECTIVE [None]
  - HYPOTONIA [None]
